FAERS Safety Report 12372441 (Version 1)
Quarter: 2016Q2

REPORT INFORMATION
  Report Type: Report from Study
  Country: JP (occurrence: JP)
  Receive Date: 20160516
  Receipt Date: 20160516
  Transmission Date: 20160815
  Serious: Yes (Hospitalization)
  Sender: FDA-Public Use
  Company Number: JP-AMGEN-JPNCT2015017390

PATIENT
  Age: 69 Year
  Sex: Male

DRUGS (11)
  1. GLIMEPIRIDE. [Concomitant]
     Active Substance: GLIMEPIRIDE
     Dosage: 1 MG, BID
     Route: 048
     Dates: start: 20110519, end: 20150225
  2. SITAGLIPTIN [Concomitant]
     Active Substance: SITAGLIPTIN
     Dosage: 50 MG, QD
     Route: 048
     Dates: start: 20110317
  3. PREFILLED SYRINGE [Suspect]
     Active Substance: UNSPECIFIED INGREDIENT
     Indication: HYPERCHOLESTEROLAEMIA
     Dosage: UNK
     Route: 058
     Dates: start: 20130403
  4. FLUOROMETHOLONE. [Concomitant]
     Active Substance: FLUOROMETHOLONE
     Dosage: 2 DROP, AS NECESSARY
     Route: 047
     Dates: start: 20130313, end: 20140430
  5. KETOTIFEN [Concomitant]
     Active Substance: KETOTIFEN
     Dosage: 0.1 MG, AS NECESSARY
     Route: 045
     Dates: start: 20130313, end: 20140430
  6. PRAVASTATIN SODIUM. [Concomitant]
     Active Substance: PRAVASTATIN SODIUM
     Dosage: 10 MG, QD
     Route: 048
     Dates: start: 20060511
  7. FEXOFENADINE [Concomitant]
     Active Substance: FEXOFENADINE\FEXOFENADINE HYDROCHLORIDE
     Dosage: 60 MG, BID
     Route: 048
     Dates: start: 20130313, end: 20140430
  8. AMG 145 [Suspect]
     Active Substance: EVOLOCUMAB
     Indication: HYPERCHOLESTEROLAEMIA
     Dosage: 420 MG, Q4WK
     Route: 058
     Dates: start: 20130403
  9. LEVOCABASTINE [Concomitant]
     Active Substance: LEVOCABASTINE
     Dosage: 2 DROP, AS NECESSARY
     Route: 047
     Dates: start: 20130313, end: 20140430
  10. MIGLITOL. [Concomitant]
     Active Substance: MIGLITOL
     Dosage: 50 TO 150 MG, BID, TID, QD
     Route: 048
     Dates: start: 20101111
  11. CARVEDILOL. [Concomitant]
     Active Substance: CARVEDILOL
     Dosage: 2.6 MG, QD
     Route: 048
     Dates: start: 20040521

REACTIONS (1)
  - Diabetes mellitus [Recovering/Resolving]

NARRATIVE: CASE EVENT DATE: 20140305
